FAERS Safety Report 4561434-8 (Version None)
Quarter: 2005Q1

REPORT INFORMATION
  Report Type: 
  Country: None (occurrence: None)
  Receive Date: 20050121
  Receipt Date: 20041104
  Transmission Date: 20050727
  Serious: Yes (Hospitalization)
  Sender: FDA-Public Use
  Company Number: 205238

PATIENT
  Age: 32 Year
  Sex: Female
  Weight: 80.7403 kg

DRUGS (2)
  1. AVONEX [Suspect]
     Indication: MULTIPLE SCLEROSIS
     Dosage: 30 UG; QW; IM
     Route: 030
     Dates: start: 19960101, end: 20030101
  2. AVONEX [Suspect]
     Indication: MULTIPLE SCLEROSIS
     Dosage: 30 UG; QW; IM
     Route: 030
     Dates: start: 20041001

REACTIONS (10)
  - DIFFICULTY IN WALKING [None]
  - GASTRIC DISORDER [None]
  - IATROGENIC INJURY [None]
  - INTESTINAL PERFORATION [None]
  - OVARIAN NEOPLASM [None]
  - PAIN [None]
  - POST PROCEDURAL COMPLICATION [None]
  - POSTOPERATIVE CONSTIPATION [None]
  - UTERINE LEIOMYOMA [None]
  - WEIGHT DECREASED [None]
